FAERS Safety Report 8774301 (Version 1)
Quarter: 2012Q4

REPORT INFORMATION
  Report Type: 
  Country: US (occurrence: US)
  Receive Date: 20120907
  Receipt Date: 20120907
  Transmission Date: 20130627
  Serious: Yes (Hospitalization)
  Sender: FDA-Public Use
  Company Number: US-AMGEN-USASP2012055978

PATIENT
  Sex: Female

DRUGS (1)
  1. ENBREL [Suspect]
     Indication: PSORIATIC ARTHROPATHY
     Dosage: 50 mg, qwk
     Route: 058
     Dates: start: 19990615

REACTIONS (5)
  - Psoriatic arthropathy [Recovered/Resolved]
  - Intervertebral disc degeneration [Recovered/Resolved]
  - Spinal column injury [Recovered/Resolved]
  - Accidental exposure to product [Recovered/Resolved]
  - Nasopharyngitis [Recovered/Resolved]
